FAERS Safety Report 24966805 (Version 2)
Quarter: 2025Q1

REPORT INFORMATION
  Report Type: Report from Study
  Country: CN (occurrence: CN)
  Receive Date: 20250213
  Receipt Date: 20250221
  Transmission Date: 20250408
  Serious: Yes (Other)
  Sender: RIGEL PHARMACEUTICALS
  Company Number: CN-CSTONE PHARMACEUTICALS (SUZHOU) CO., LTD.-2025CN00034

PATIENT
  Age: 80 Year
  Sex: Male

DRUGS (3)
  1. PRALSETINIB [Suspect]
     Active Substance: PRALSETINIB
     Indication: Lung neoplasm malignant
     Route: 048
     Dates: start: 202405, end: 202406
  2. PRALSETINIB [Suspect]
     Active Substance: PRALSETINIB
     Route: 048
     Dates: start: 202406, end: 202411
  3. PRALSETINIB [Suspect]
     Active Substance: PRALSETINIB
     Route: 048

REACTIONS (2)
  - Myelosuppression [Recovering/Resolving]
  - White blood cell count decreased [Recovering/Resolving]

NARRATIVE: CASE EVENT DATE: 20240601
